FAERS Safety Report 4732925-1 (Version None)
Quarter: 2005Q3

REPORT INFORMATION
  Report Type: 
  Country: None (occurrence: None)
  Receive Date: 20050803
  Receipt Date: 20050523
  Transmission Date: 20060218
  Serious: No
  Sender: FDA-Public Use
  Company Number: US-GLAXOSMITHKLINE-A0559771A

PATIENT
  Age: 72 Year
  Sex: Female

DRUGS (3)
  1. AVANDAMET [Suspect]
     Dosage: 1TAB TWICE PER DAY
     Route: 048
     Dates: end: 20050301
  2. GLUCOTROL [Concomitant]
  3. PRAVACHOL [Concomitant]

REACTIONS (1)
  - HAIR COLOUR CHANGES [None]
